FAERS Safety Report 5618283-9 (Version None)
Quarter: 2008Q1

REPORT INFORMATION
  Report Type: 
  Country: None (occurrence: None)
  Receive Date: 20080207
  Receipt Date: 20080201
  Transmission Date: 20080703
  Serious: Yes (Death, Life-Threatening)
  Sender: FDA-Public Use
  Company Number: CH-BAYER-200812049GPV

PATIENT
  Age: 60 Year
  Sex: Female

DRUGS (1)
  1. ULTRAVIST 300 [Suspect]
     Indication: COMPUTERISED TOMOGRAM THORAX
     Route: 042
     Dates: start: 20071227

REACTIONS (6)
  - ANAPHYLACTOID SHOCK [None]
  - BRAIN OEDEMA [None]
  - BRAIN STEM SYNDROME [None]
  - BRONCHOSPASM [None]
  - CARDIAC ARREST [None]
  - HYPOXIC ENCEPHALOPATHY [None]
